FAERS Safety Report 15705616 (Version 1)
Quarter: 2018Q4

REPORT INFORMATION
  Report Type: Spontaneous
  Country: US (occurrence: US)
  Receive Date: 20181210
  Receipt Date: 20181210
  Transmission Date: 20190205
  Serious: Yes (Disabling)
  Sender: FDA-Public Use
  Company Number: None

PATIENT
  Age: 47 Year
  Sex: Female
  Weight: 52.65 kg

DRUGS (7)
  1. DOXCYCLINE [Concomitant]
  2. OMEGA-3 ACIDS [Concomitant]
     Active Substance: OMEGA-3 FATTY ACIDS
  3. BIOTIN [Concomitant]
     Active Substance: BIOTIN
  4. ESTRADIOL. [Concomitant]
     Active Substance: ESTRADIOL
  5. VITAMIN D3 [Concomitant]
     Active Substance: CHOLECALCIFEROL
  6. TUMERIC [Concomitant]
     Active Substance: HERBALS\TURMERIC
  7. FINASTERIDE. [Suspect]
     Active Substance: FINASTERIDE
     Indication: ALOPECIA
     Dosage: ?          QUANTITY:1 TABLET(S);?
     Route: 048
     Dates: start: 20181102, end: 20181210

REACTIONS (2)
  - Gingival disorder [None]
  - Gingival discolouration [None]

NARRATIVE: CASE EVENT DATE: 20181205
